FAERS Safety Report 11719583 (Version 1)
Quarter: 2015Q4

REPORT INFORMATION
  Report Type: Spontaneous
  Country: US (occurrence: US)
  Receive Date: 20151110
  Receipt Date: 20151110
  Transmission Date: 20160304
  Serious: No
  Sender: FDA-Public Use
  Company Number: US-MISSION PHARMACAL COMPANY-1043984

PATIENT
  Age: 50 Year
  Sex: Male

DRUGS (2)
  1. THIOLA [Concomitant]
     Active Substance: TIOPRONIN
     Route: 065
     Dates: end: 20150528
  2. THIOLA [Suspect]
     Active Substance: TIOPRONIN
     Route: 065
     Dates: end: 20150528

REACTIONS (4)
  - Ear discomfort [Unknown]
  - Decreased appetite [Unknown]
  - Abdominal distension [Unknown]
  - Feeling abnormal [Unknown]
